FAERS Safety Report 25761608 (Version 2)
Quarter: 2025Q4

REPORT INFORMATION
  Report Type: Report from Study
  Country: US (occurrence: US)
  Receive Date: 20250904
  Receipt Date: 20251110
  Transmission Date: 20260118
  Serious: Yes (Other)
  Sender: NOVARTIS
  Company Number: US-002147023-NVSC2025US037948

PATIENT
  Age: 45 Year
  Sex: Male

DRUGS (3)
  1. KESIMPTA [Suspect]
     Active Substance: OFATUMUMAB
     Indication: Relapsing multiple sclerosis
     Dosage: 20 MG, QMO
     Route: 058
     Dates: start: 20250227
  2. METHADONE [Concomitant]
     Active Substance: METHADONE HYDROCHLORIDE
     Indication: Pain
     Dosage: UNK (LOW DOSE)
     Route: 065
     Dates: start: 20240902
  3. BUPRENORPHINE [Concomitant]
     Active Substance: BUPRENORPHINE
     Indication: Pain
     Dosage: UNK, QD, LOW DOSE LASTS 10-12 HOURS TAKES ONCE A DAY HE CAN TAKE TWICE A DAY
     Route: 065
     Dates: start: 20240902

REACTIONS (21)
  - Multiple sclerosis relapse [Unknown]
  - Optic neuritis [Unknown]
  - Fatigue [Unknown]
  - Influenza [Unknown]
  - Nasopharyngitis [Unknown]
  - Tremor [Unknown]
  - Chills [Unknown]
  - Pyrexia [Unknown]
  - Dyspnoea [Unknown]
  - Vomiting [Unknown]
  - Myalgia [Unknown]
  - Insomnia [Recovering/Resolving]
  - Muscular weakness [Unknown]
  - Mobility decreased [Unknown]
  - Gait inability [Unknown]
  - Anxiety [Unknown]
  - Vision blurred [Unknown]
  - Dyschromatopsia [Unknown]
  - Memory impairment [Unknown]
  - Stress [Unknown]
  - Inappropriate schedule of product administration [Unknown]

NARRATIVE: CASE EVENT DATE: 20250227
